FAERS Safety Report 18475241 (Version 2)
Quarter: 2020Q4

REPORT INFORMATION
  Report Type: Spontaneous
  Country: US (occurrence: US)
  Receive Date: 20201106
  Receipt Date: 20201113
  Transmission Date: 20210114
  Serious: Yes (Other)
  Sender: FDA-Public Use
  Company Number: US-ASTRAZENECA-2020SF42522

PATIENT
  Age: 970 Month
  Sex: Male
  Weight: 88.5 kg

DRUGS (3)
  1. BYDUREON [Suspect]
     Active Substance: EXENATIDE
     Indication: TYPE 2 DIABETES MELLITUS
     Route: 058
  2. GLIMEPIRIDE. [Concomitant]
     Active Substance: GLIMEPIRIDE
     Dosage: 4.0MG UNKNOWN
     Route: 065
  3. METFORMIN ER [Concomitant]
     Active Substance: METFORMIN HYDROCHLORIDE
     Route: 065

REACTIONS (3)
  - Device delivery system issue [Unknown]
  - Weight fluctuation [Unknown]
  - Skin cancer [Unknown]

NARRATIVE: CASE EVENT DATE: 202007
